FAERS Safety Report 4598290-8 (Version None)
Quarter: 2005Q1

REPORT INFORMATION
  Report Type: 
  Country: None (occurrence: None)
  Receive Date: 20050301
  Receipt Date: 20050301
  Transmission Date: 20050727
  Serious: Yes (Other)
  Sender: FDA-Public Use
  Company Number: None

PATIENT
  Age: 28 Year
  Sex: Male

DRUGS (4)
  1. GENERIC FENTANYL PATCHES [Suspect]
     Indication: BACK PAIN
     Dosage: EVERY 72 HOURS
     Dates: start: 20020912, end: 20050217
  2. GENERIC FENTANYL PATCHES [Suspect]
     Indication: RADICULOPATHY
     Dosage: EVERY 72 HOURS
     Dates: start: 20020912, end: 20050217
  3. GENERIC FENTANYL PATCHES [Suspect]
     Indication: BACK PAIN
     Dosage: EVERY 72 HOURS
     Dates: start: 20050217
  4. GENERIC FENTANYL PATCHES [Suspect]
     Indication: RADICULOPATHY
     Dosage: EVERY 72 HOURS
     Dates: start: 20050217

REACTIONS (2)
  - DRUG EFFECT DECREASED [None]
  - PHARMACEUTICAL PRODUCT COMPLAINT [None]
